FAERS Safety Report 9228335 (Version 2)
Quarter: 2013Q2

REPORT INFORMATION
  Report Type: Spontaneous
  Country: FR (occurrence: FR)
  Receive Date: 20130412
  Receipt Date: 20130513
  Transmission Date: 20140414
  Serious: Yes (Hospitalization)
  Sender: FDA-Public Use
  Company Number: FR-TEVA-397078ISR

PATIENT
  Age: 33 Year
  Sex: Female

DRUGS (2)
  1. ESTREVA [Suspect]
     Indication: ENDOMETRIOSIS
     Route: 048
     Dates: start: 201208, end: 201301
  2. DECAPEPTYL [Suspect]
     Indication: ENDOMETRIOSIS
     Route: 048
     Dates: start: 201208, end: 201301

REACTIONS (3)
  - Erythema nodosum [Recovered/Resolved]
  - Myositis [Recovered/Resolved]
  - Off label use [Unknown]
